FAERS Safety Report 6607297-8 (Version None)
Quarter: 2010Q1

REPORT INFORMATION
  Report Type: 
  Country: None (occurrence: None)
  Receive Date: 20100228
  Receipt Date: 20100215
  Transmission Date: 20100710
  Serious: Yes (Death)
  Sender: FDA-Public Use
  Company Number: US-JNJFOC-20100210690

PATIENT
  Age: 1 Day
  Sex: Male
  Weight: 0.86 kg

DRUGS (1)
  1. FENTANYL [Suspect]
     Indication: DRUG EXPOSURE DURING PREGNANCY
     Route: 015

REACTIONS (4)
  - CAESAREAN SECTION [None]
  - DRUG LEVEL INCREASED [None]
  - MATERNAL DRUGS AFFECTING FOETUS [None]
  - PREMATURE BABY [None]
